FAERS Safety Report 8922666 (Version 1)
Quarter: 2012Q4

REPORT INFORMATION
  Report Type: 
  Country: CO (occurrence: CO)
  Receive Date: 20121123
  Receipt Date: 20121123
  Transmission Date: 20130627
  Serious: Yes (Other)
  Sender: FDA-Public Use
  Company Number: CO-PFIZER INC-2012289719

PATIENT
  Age: 10 Year
  Sex: Male

DRUGS (2)
  1. GENOTROPIN [Suspect]
     Indication: GROWTH HORMONE DEFICIENCY
  2. GENOTROPIN [Suspect]
     Indication: SHORT STATURE
     Dosage: 1.8 mg, 1x/day
     Route: 058

REACTIONS (2)
  - Off label use [Unknown]
  - Penis disorder [Not Recovered/Not Resolved]
